FAERS Safety Report 20262786 (Version 1)
Quarter: 2021Q4

REPORT INFORMATION
  Report Type: Spontaneous
  Country: CN (occurrence: CN)
  Receive Date: 20211231
  Receipt Date: 20211231
  Transmission Date: 20220304
  Serious: Yes (Other)
  Sender: FDA-Public Use
  Company Number: CN-ABBVIE-21K-035-4217327-00

PATIENT
  Age: 28 Year
  Sex: Male
  Weight: 83 kg

DRUGS (1)
  1. VALPROATE SODIUM [Suspect]
     Active Substance: VALPROATE SODIUM
     Indication: Epilepsy
     Dosage: 1 DF, BID, 333.3/145 MG
     Route: 048
     Dates: start: 201808

REACTIONS (4)
  - Abnormal dreams [Not Recovered/Not Resolved]
  - Muscle spasms [Recovered/Resolved]
  - Somnolence [Not Recovered/Not Resolved]
  - Epilepsy [Recovered/Resolved]

NARRATIVE: CASE EVENT DATE: 20180801
